FAERS Safety Report 8508784-8 (Version None)
Quarter: 2012Q3

REPORT INFORMATION
  Report Type: 
  Country: None (occurrence: None)
  Receive Date: 20120713
  Receipt Date: 20120705
  Transmission Date: 20120928
  Serious: Yes (Other)
  Sender: FDA-Public Use
  Company Number: US-JNJFOC-20120702925

PATIENT
  Sex: Female

DRUGS (4)
  1. REMICADE [Suspect]
     Dosage: STOPPED DUE TO INSURANCE PROBLEMS
     Route: 042
     Dates: start: 20080101
  2. AZULFIDINE [Concomitant]
     Indication: CROHN'S DISEASE
  3. REMICADE [Suspect]
     Indication: CROHN'S DISEASE
     Dosage: STOPPED DUE TO INSURANCE PROBLEMS
     Route: 042
     Dates: end: 20120301
  4. PREDNISONE [Concomitant]
     Indication: CROHN'S DISEASE

REACTIONS (5)
  - SURGERY [None]
  - HEADACHE [None]
  - EYE INFLAMMATION [None]
  - CROHN'S DISEASE [None]
  - EYE PAIN [None]
